FAERS Safety Report 8805901 (Version 1)
Quarter: 2012Q4

REPORT INFORMATION
  Report Type: Spontaneous
  Country: US (occurrence: None)
  Receive Date: 20120918
  Receipt Date: 20120918
  Transmission Date: 20130627
  Serious: Yes (Death, Hospitalization)
  Sender: FDA-Public Use
  Company Number: 2012090062

PATIENT
  Age: 70 Year
  Sex: Female

DRUGS (1)
  1. MESALAMINE [Suspect]
     Indication: CROHN^S DISEASE
     Dosage: 4 times a day (500 mg, 4 in 1 d)

REACTIONS (5)
  - Toxicity to various agents [None]
  - Diffuse alveolar damage [None]
  - Interstitial lung disease [None]
  - Treatment noncompliance [None]
  - Incorrect drug administration duration [None]
